FAERS Safety Report 4634483-9 (Version None)
Quarter: 2005Q2

REPORT INFORMATION
  Report Type: 
  Country: None (occurrence: None)
  Receive Date: 20050412
  Receipt Date: 20050331
  Transmission Date: 20051028
  Serious: Yes (Life-Threatening)
  Sender: FDA-Public Use
  Company Number: HQWYE072403FEB05

PATIENT
  Age: 10 Year
  Sex: Female

DRUGS (11)
  1. TAZOCIN (PIPERACILLIN/TAZOBACTAM, INJECTION) [Suspect]
     Indication: PSEUDOMONAS INFECTION
     Dosage: 3 GRAMS PER DAY INTRAVENOUS DRIP
     Route: 041
     Dates: start: 20050108, end: 20050111
  2. TAZOCIN (PIPERACILLIN/TAZOBACTAM, INJECTION) [Suspect]
     Indication: SEPSIS
     Dosage: 3 GRAMS PER DAY INTRAVENOUS DRIP
     Route: 041
     Dates: start: 20050108, end: 20050111
  3. MODACIN (CEFTAZIDIME,) [Suspect]
     Indication: PSEUDOMONAS INFECTION
     Dosage: 3 GRAMS PER DAY INTRAVENOUS DRIP
     Route: 041
     Dates: start: 20041124, end: 20050201
  4. MODACIN (CEFTAZIDIME,) [Suspect]
     Indication: SEPSIS
     Dosage: 3 GRAMS PER DAY INTRAVENOUS DRIP
     Route: 041
     Dates: start: 20041124, end: 20050201
  5. PREDNISOLONE [Concomitant]
  6. DORMICUM ^ROCHE^ (MIDAZOLAM MALEATE) [Concomitant]
  7. HUMULIN (INSULIN HUMAN) [Concomitant]
  8. DILTIAZEM HYDROCHLORIDE [Concomitant]
  9. ANTIFUNGAL (ANTIFUNGAL) [Concomitant]
  10. ISOZOL (THIAMYLAL SODIUM) [Concomitant]
  11. STRONG NEO-MINOPHAGEN C (AMINOACETIC ACID/CYSTEINE/GLYCYRRHIZIC ACID) [Concomitant]

REACTIONS (7)
  - ALANINE AMINOTRANSFERASE INCREASED [None]
  - ASPARTATE AMINOTRANSFERASE INCREASED [None]
  - BLOOD LACTATE DEHYDROGENASE INCREASED [None]
  - C-REACTIVE PROTEIN INCREASED [None]
  - DRUG INTERACTION [None]
  - HEPATIC FUNCTION ABNORMAL [None]
  - RENAL FAILURE [None]
